FAERS Safety Report 19674417 (Version 8)
Quarter: 2022Q3

REPORT INFORMATION
  Report Type: Spontaneous
  Country: ES (occurrence: ES)
  Receive Date: 20210809
  Receipt Date: 20220802
  Transmission Date: 20221026
  Serious: Yes (Death, Hospitalization, Other)
  Sender: FDA-Public Use
  Company Number: ES-GRUNENTHAL-2021-267886

PATIENT
  Age: 74 Year
  Sex: Female

DRUGS (18)
  1. ACETAMINOPHEN [Suspect]
     Active Substance: ACETAMINOPHEN
     Indication: Pain
     Dosage: 1 GRAM (1 G, TID,EVERY 8H)
     Route: 065
     Dates: start: 2020
  2. ACETAMINOPHEN [Suspect]
     Active Substance: ACETAMINOPHEN
     Dosage: 3 GRAM, ONCE A DAY
     Route: 065
     Dates: start: 20201011, end: 20201222
  3. SERTRALINE [Interacting]
     Active Substance: SERTRALINE HYDROCHLORIDE
     Indication: Adjustment disorder with depressed mood
     Dosage: 50 MILLIGRAM, ONCE A DAY
     Route: 065
     Dates: start: 20210215, end: 20210301
  4. FENTANYL [Interacting]
     Active Substance: FENTANYL
     Indication: Breakthrough pain
     Dosage: 200 MICROGRAM, AS NECESSARY (2 DAILY RESCUES)
     Route: 002
     Dates: start: 20210216
  5. FENTANYL [Interacting]
     Active Substance: FENTANYL
     Indication: Sciatica
  6. METAMIZOLE [Suspect]
     Active Substance: METAMIZOLE
     Indication: Sciatica
     Dosage: 575 MILLIGRAM (575 MG, TID, EVERY 8H)
     Route: 065
     Dates: start: 2020
  7. PALEXIA [Interacting]
     Active Substance: TAPENTADOL HYDROCHLORIDE
     Indication: Pain
     Dosage: 100 MILLIGRAM, ONCE A DAY
     Route: 048
     Dates: start: 20201222, end: 20210216
  8. PALEXIA [Interacting]
     Active Substance: TAPENTADOL HYDROCHLORIDE
     Indication: Sciatica
     Dosage: 400 MILLIGRAM, ONCE A DAY
     Route: 048
     Dates: start: 20210216, end: 202103
  9. TAPENTADOL [Suspect]
     Active Substance: TAPENTADOL
     Indication: Sciatica
     Dosage: 50 MILLIGRAM, TWO TIMES A DAY
     Route: 065
     Dates: start: 20201222
  10. TAPENTADOL [Suspect]
     Active Substance: TAPENTADOL
     Dosage: 200 MILLIGRAM, TWO TIMES A DAY
     Route: 065
  11. FENTANYL [Concomitant]
     Active Substance: FENTANYL
     Indication: Sciatica
     Dosage: 2 DOSAGE FORM, ONCE A DAY (2 DAILY DOSES OF TRANSMUCOSAL FENTANYL 200 MCG)
     Route: 065
     Dates: start: 20210216
  12. GABAPENTIN [Concomitant]
     Active Substance: GABAPENTIN
     Indication: Pain
     Dosage: 300 MILLIGRAM, ONCE A DAY
     Route: 065
     Dates: start: 20210216
  13. GABAPENTIN [Concomitant]
     Active Substance: GABAPENTIN
     Indication: Sciatica
  14. OCTREOTIDE [Concomitant]
     Active Substance: OCTREOTIDE
     Indication: Carcinoid syndrome
     Dosage: UNK
     Route: 065
  15. OXYCODONE [Concomitant]
     Active Substance: OXYCODONE
     Indication: Sciatica
     Dosage: UNK
     Route: 051
  16. OXYCODONE [Concomitant]
     Active Substance: OXYCODONE
     Dosage: UNK
     Route: 058
  17. DIPYRONE [Concomitant]
     Active Substance: DIPYRONE
     Indication: Pain
     Dosage: 1725 MILLIGRAM, ONCE A DAY
     Route: 065
     Dates: start: 20201011, end: 20201222
  18. DIPYRONE [Concomitant]
     Active Substance: DIPYRONE
     Indication: Sciatica

REACTIONS (11)
  - Neuroendocrine carcinoma [Fatal]
  - Serotonin syndrome [Recovered/Resolved]
  - Hyperresponsive to stimuli [Recovering/Resolving]
  - Pelvic pain [Unknown]
  - Flushing [Unknown]
  - Vomiting [Unknown]
  - Restlessness [Unknown]
  - Drug interaction [Unknown]
  - Asthenia [Unknown]
  - Decreased appetite [Unknown]
  - Drug ineffective [Unknown]

NARRATIVE: CASE EVENT DATE: 20210301
